FAERS Safety Report 13586596 (Version 1)
Quarter: 2017Q2

REPORT INFORMATION
  Report Type: Spontaneous
  Country: US (occurrence: US)
  Receive Date: 20170526
  Receipt Date: 20170526
  Transmission Date: 20170830
  Serious: Yes (Other)
  Sender: FDA-Public Use
  Company Number: US-TEVA-773647ACC

PATIENT
  Sex: Female
  Weight: 68.1 kg

DRUGS (2)
  1. ALBUTEROL INHALER [Concomitant]
     Active Substance: ALBUTEROL
  2. PARAGARD T 380A [Suspect]
     Active Substance: COPPER
     Indication: CONTRACEPTION
     Dates: start: 20160715, end: 20161208

REACTIONS (1)
  - Device dislocation [Recovered/Resolved]
